FAERS Safety Report 6112198-8 (Version None)
Quarter: 2009Q1

REPORT INFORMATION
  Report Type: 
  Country: None (occurrence: None)
  Receive Date: 20090310
  Receipt Date: 20090223
  Transmission Date: 20090719
  Serious: Yes (Other)
  Sender: FDA-Public Use
  Company Number: 2009S1002228

PATIENT
  Age: 39 Year
  Sex: Female
  Weight: 59.4212 kg

DRUGS (8)
  1. LEVETIRACETAM TABLETS (750 MG) [Suspect]
     Indication: CONVULSION PROPHYLAXIS
     Dosage: SEE IMAGE
     Dates: start: 20081101, end: 20081201
  2. LEVETIRACETAM TABLETS (750 MG) [Suspect]
     Indication: CONVULSION PROPHYLAXIS
     Dosage: SEE IMAGE
     Dates: start: 20081201, end: 20090120
  3. LEVETIRACETAM TABLETS (750 MG) [Suspect]
     Indication: CONVULSION PROPHYLAXIS
     Dosage: SEE IMAGE
     Dates: start: 20081201, end: 20090120
  4. LEVETIRACETAM TABLETS (750 MG) [Suspect]
     Indication: CONVULSION PROPHYLAXIS
     Dosage: SEE IMAGE
     Dates: start: 20090120
  5. LAMOTRIGINE [Suspect]
     Indication: CONVULSION PROPHYLAXIS
     Dosage: 400 MG; EVERY MORNING; ORAL; 500 MG; AT BEDTIME; ORAL
     Route: 048
     Dates: start: 20080901
  6. LAMOTRIGINE [Suspect]
     Indication: CONVULSION PROPHYLAXIS
     Dosage: 400 MG; EVERY MORNING; ORAL; 500 MG; AT BEDTIME; ORAL
     Route: 048
     Dates: start: 20080901
  7. CONCERTA (CON.) [Concomitant]
  8. MULTIVITAMINS (CON.) [Concomitant]

REACTIONS (10)
  - CONFUSIONAL STATE [None]
  - CONVULSION [None]
  - DISTURBANCE IN ATTENTION [None]
  - DIZZINESS [None]
  - DRUG INEFFECTIVE [None]
  - HEADACHE [None]
  - HYPOAESTHESIA [None]
  - MOOD SWINGS [None]
  - THERAPEUTIC RESPONSE UNEXPECTED WITH DRUG SUBSTITUTION [None]
  - WRONG TECHNIQUE IN DRUG USAGE PROCESS [None]
